FAERS Safety Report 6259243-7 (Version None)
Quarter: 2009Q3

REPORT INFORMATION
  Report Type: 
  Country: None (occurrence: None)
  Receive Date: 20090707
  Receipt Date: 20090630
  Transmission Date: 20100115
  Serious: Yes (Hospitalization, Other)
  Sender: FDA-Public Use
  Company Number: US-AMGEN-QUU351058

PATIENT
  Sex: Female

DRUGS (6)
  1. ENBREL [Suspect]
     Indication: RHEUMATOID ARTHRITIS
     Route: 058
     Dates: start: 19990519
  2. PREMARIN [Concomitant]
  3. FLEXERIL [Concomitant]
  4. SYNTHROID [Concomitant]
  5. PREDNISONE TAB [Concomitant]
  6. IBUPROFEN [Concomitant]

REACTIONS (11)
  - CHEST PAIN [None]
  - COUGH [None]
  - DYSPNOEA [None]
  - EAR PAIN [None]
  - ERYTHEMA [None]
  - MUSCULOSKELETAL STIFFNESS [None]
  - PARAESTHESIA [None]
  - RHEUMATOID ARTHRITIS [None]
  - SINUS HEADACHE [None]
  - SINUSITIS [None]
  - WHITE BLOOD CELL COUNT DECREASED [None]
